FAERS Safety Report 18463706 (Version 4)
Quarter: 2020Q4

REPORT INFORMATION
  Report Type: Report from Study
  Country: BE (occurrence: BE)
  Receive Date: 20201104
  Receipt Date: 20201221
  Transmission Date: 20210114
  Serious: Yes (Life-Threatening, Hospitalization, Other)
  Sender: FDA-Public Use
  Company Number: BE-COLLEGIUM PHARMACEUTICAL, INC.-2020CGM00361

PATIENT
  Age: 55 Year
  Sex: Male
  Weight: 73 kg

DRUGS (3)
  1. ALCOHOL. [Suspect]
     Active Substance: ALCOHOL
     Indication: PRODUCT USED FOR UNKNOWN INDICATION
  2. NUCYNTA [Suspect]
     Active Substance: TAPENTADOL HYDROCHLORIDE
     Indication: PAIN
     Dosage: 50 MG, 2X/DAY
     Route: 048
     Dates: start: 20191204, end: 20200212
  3. NUCYNTA ER [Suspect]
     Active Substance: TAPENTADOL HYDROCHLORIDE
     Indication: PAIN
     Dosage: 250 MG, 2X/DAY
     Route: 048
     Dates: start: 20191110, end: 20200212

REACTIONS (23)
  - Traumatic intracranial haemorrhage [Recovering/Resolving]
  - Extensor plantar response [Unknown]
  - Encephalomalacia [Unknown]
  - Cognitive disorder [Unknown]
  - Hippocampal atrophy [Unknown]
  - Epilepsy [Recovered/Resolved]
  - Coma [Recovered/Resolved]
  - Gait disturbance [Unknown]
  - Hepatic function abnormal [Unknown]
  - Fall [Recovered/Resolved]
  - Agitation [Unknown]
  - Withdrawal syndrome [Unknown]
  - Hyponatraemia [Recovered/Resolved]
  - Brain contusion [Recovered/Resolved]
  - Skull fracture [Unknown]
  - Muscle twitching [Unknown]
  - Memory impairment [Unknown]
  - Head injury [Recovered/Resolved]
  - Delirium [Unknown]
  - Encephalitis [Unknown]
  - Restlessness [Unknown]
  - Urinary tract infection [Unknown]
  - Disturbance in attention [Unknown]

NARRATIVE: CASE EVENT DATE: 202001
